FAERS Safety Report 5631792-1 (Version None)
Quarter: 2008Q1

REPORT INFORMATION
  Report Type: 
  Country: None (occurrence: None)
  Receive Date: 20080220
  Receipt Date: 20080207
  Transmission Date: 20080703
  Serious: Yes (Other)
  Sender: FDA-Public Use
  Company Number: PHBS2007JP18833

PATIENT
  Age: 64 Year
  Sex: Female
  Weight: 48 kg

DRUGS (7)
  1. METOPIRONE [Suspect]
     Indication: PITUITARY-DEPENDENT CUSHING'S SYNDROME
     Dosage: 750MG/D
     Route: 048
     Dates: start: 20071102, end: 20071105
  2. METOPIRONE [Suspect]
     Dosage: 500 MG/D
     Route: 048
     Dates: start: 20071106, end: 20071112
  3. DEPAKENE [Suspect]
     Indication: MENTAL DISORDER
     Dosage: 600MG/D
     Route: 048
     Dates: start: 19980101, end: 20071120
  4. SERENACE [Concomitant]
     Indication: MENTAL DISORDER
     Dosage: 6MG/D
     Route: 048
     Dates: start: 20061215
  5. AKINETON [Concomitant]
     Indication: MENTAL DISORDER
     Dosage: 3MG/D
     Route: 048
     Dates: start: 20071225
  6. TRICHLORMETHIAZIDE [Concomitant]
     Indication: NEPHROGENIC DIABETES INSIPIDUS
     Dosage: 1.5 MG/D
     Route: 048
     Dates: start: 20071101
  7. GASTER D [Concomitant]
     Indication: GASTRITIS
     Dosage: 20 MG
     Route: 048
     Dates: start: 20071104

REACTIONS (4)
  - ADRENAL INSUFFICIENCY [None]
  - BLOOD CORTICOTROPHIN DECREASED [None]
  - BLOOD CORTISOL DECREASED [None]
  - POTENTIATING DRUG INTERACTION [None]
